FAERS Safety Report 18070279 (Version 1)
Quarter: 2020Q3

REPORT INFORMATION
  Report Type: Spontaneous
  Country: US (occurrence: US)
  Receive Date: 20200727
  Receipt Date: 20200727
  Transmission Date: 20201103
  Serious: No
  Sender: FDA-Public Use
  Company Number: US-AUROBINDO-AUR-APL-2020-015442

PATIENT
  Age: 9 Year
  Sex: Female

DRUGS (1)
  1. SULFAMETHOXAZOLE / TRIMETHOPRIM ORAL SUSPENSION USP 200/40MG PER 5ML [Suspect]
     Active Substance: SULFAMETHOXAZOLE\TRIMETHOPRIM
     Indication: INFECTION
     Dosage: 10 MILLILITER, TWO TIMES A DAY
     Route: 048

REACTIONS (1)
  - Product storage error [Unknown]
